FAERS Safety Report 16066202 (Version 2)
Quarter: 2019Q1

REPORT INFORMATION
  Report Type: Spontaneous
  Country: US (occurrence: US)
  Receive Date: 20190313
  Receipt Date: 20190322
  Transmission Date: 20190418
  Serious: Yes (Other)
  Sender: FDA-Public Use
  Company Number: US-ASTRAZENECA-2019SE39506

PATIENT
  Age: 54 Year
  Sex: Female

DRUGS (1)
  1. IMFINZI [Suspect]
     Active Substance: DURVALUMAB
     Indication: NON-SMALL CELL LUNG CANCER STAGE III
     Route: 042
     Dates: start: 20181113, end: 20181223

REACTIONS (3)
  - Seizure [Unknown]
  - Mental status changes [Not Recovered/Not Resolved]
  - Metastases to central nervous system [Unknown]

NARRATIVE: CASE EVENT DATE: 20181223
